FAERS Safety Report 8965615 (Version 1)
Quarter: 2012Q4

REPORT INFORMATION
  Report Type: Spontaneous
  Country: US (occurrence: None)
  Receive Date: 20121212
  Receipt Date: 20121212
  Transmission Date: 20130627
  Serious: No
  Sender: FDA-Public Use
  Company Number: None

PATIENT
  Age: 63 Year
  Sex: Male
  Weight: 86.18 kg

DRUGS (1)
  1. AMOX TR-K CLV [Suspect]
     Indication: BRONCHITIS

REACTIONS (3)
  - Malaise [None]
  - Lethargy [None]
  - Reaction to drug excipients [None]
